FAERS Safety Report 6036276-7 (Version None)
Quarter: 2009Q1

REPORT INFORMATION
  Report Type: 
  Country: None (occurrence: None)
  Receive Date: 20090113
  Receipt Date: 20090108
  Transmission Date: 20090719
  Serious: Yes (Hospitalization)
  Sender: FDA-Public Use
  Company Number: PHHY2008JP28746

PATIENT
  Sex: Female
  Weight: 54 kg

DRUGS (9)
  1. NEORAL [Suspect]
     Indication: BEHCET'S SYNDROME
     Dosage: 200 MG/DAY
     Route: 048
     Dates: start: 20081014, end: 20081105
  2. COLCHICINE [Interacting]
     Indication: BEHCET'S SYNDROME
     Dosage: 200 MG PER DAY
     Route: 048
     Dates: start: 20081014, end: 20081105
  3. COLCHICINE [Interacting]
     Dosage: 1.5 MG PER DAY
     Route: 048
     Dates: start: 20000101
  4. PREDONINE [Concomitant]
     Indication: BEHCET'S SYNDROME
     Dosage: 3 MG/DAY
  5. PREDONINE [Concomitant]
     Dosage: 20 MG PER DAY
     Route: 048
     Dates: start: 20081014
  6. ALTAT [Concomitant]
     Indication: PROPHYLAXIS AGAINST GASTROINTESTINAL ULCER
     Dosage: 150 MG PER DAY
     Route: 048
  7. UNSEIIN [Concomitant]
     Indication: BEHCET'S SYNDROME
     Dosage: 7.5 G PER DAY
  8. ACTONEL [Concomitant]
     Indication: OSTEOPOROSIS
     Dosage: 7.5 MG PER DAY
     Route: 048
  9. MUCOSTA [Concomitant]
     Indication: GASTRITIS
     Dosage: 300 MG PER DAY
     Route: 048

REACTIONS (4)
  - BLOOD CREATINE PHOSPHOKINASE INCREASED [None]
  - DRUG INTERACTION [None]
  - HYPOAESTHESIA [None]
  - MUSCULAR WEAKNESS [None]
